FAERS Safety Report 5494118-2 (Version None)
Quarter: 2007Q4

REPORT INFORMATION
  Report Type: 
  Country: None (occurrence: None)
  Receive Date: 20071022
  Receipt Date: 20071017
  Transmission Date: 20080405
  Serious: Yes (Other)
  Sender: FDA-Public Use
  Company Number: 019721

PATIENT
  Age: 56 Year
  Sex: Female

DRUGS (4)
  1. MEDROXYPROGESTERONE ACETATE [Suspect]
     Dosage: ORAL
     Route: 048
     Dates: start: 19970101, end: 19980101
  2. PREMARIN [Suspect]
     Dosage: ORAL
     Route: 048
     Dates: start: 19970101, end: 19980101
  3. PREMPRO [Suspect]
     Dosage: ORAL
     Route: 048
     Dates: start: 19980101, end: 20020101
  4. PROVERA [Suspect]
     Dosage: ORAL
     Route: 048
     Dates: start: 19970101, end: 19980101

REACTIONS (1)
  - BREAST CANCER FEMALE [None]
